FAERS Safety Report 4579599-0 (Version None)
Quarter: 2005Q1

REPORT INFORMATION
  Report Type: 
  Country: None (occurrence: None)
  Receive Date: 20050210
  Receipt Date: 20050210
  Transmission Date: 20050727
  Serious: Yes (Hospitalization)
  Sender: FDA-Public Use
  Company Number: None

PATIENT
  Age: 68 Year
  Sex: Male
  Weight: 113 kg

DRUGS (16)
  1. ZOMETA [Suspect]
     Indication: HYPERGAMMAGLOBULINAEMIA BENIGN MONOCLONAL
     Dosage: 4 MG/ ONCE MONTHLY
     Dates: start: 20050202
  2. ZOMETA [Suspect]
     Indication: MULTIPLE MYELOMA
     Dosage: 4 MG/ ONCE MONTHLY
     Dates: start: 20050202
  3. TRAZODONE [Concomitant]
  4. AMITRIPTYLINE [Concomitant]
  5. LIPITOR [Concomitant]
  6. NITROGLYCERIN [Concomitant]
  7. ASPIRIN [Concomitant]
  8. VITAMIN E [Concomitant]
  9. VITAMIN B-12 [Concomitant]
  10. VITAMIN B6 [Concomitant]
  11. FOLATE [Concomitant]
  12. DARVOCET [Concomitant]
  13. TUMS [Concomitant]
  14. CORDRAN CREAM [Concomitant]
  15. TOPROL-XL [Concomitant]
  16. SENOKOT [Concomitant]

REACTIONS (6)
  - ATRIAL FIBRILLATION [None]
  - INFLUENZA [None]
  - OLIGURIA [None]
  - RENAL FAILURE ACUTE [None]
  - RESPIRATORY FAILURE [None]
  - SEPSIS [None]
